FAERS Safety Report 22192381 (Version 2)
Quarter: 2023Q4

REPORT INFORMATION
  Report Type: Report from Study
  Country: FR (occurrence: FR)
  Receive Date: 20230410
  Receipt Date: 20231012
  Transmission Date: 20240109
  Serious: Yes (Hospitalization)
  Sender: FDA-Public Use
  Company Number: FR-ABBVIE-4723190

PATIENT
  Age: 82 Year
  Sex: Female
  Weight: 60 kg

DRUGS (11)
  1. UPADACITINIB [Suspect]
     Active Substance: UPADACITINIB
     Indication: Rheumatoid arthritis
     Dosage: 15 MILLIGRAM
     Route: 048
     Dates: start: 20220503, end: 20230404
  2. UPADACITINIB [Suspect]
     Active Substance: UPADACITINIB
     Indication: Rheumatoid arthritis
     Dosage: 15 MILLIGRAM
     Route: 048
     Dates: start: 20211019, end: 20220425
  3. SYMBICORT [Concomitant]
     Active Substance: BUDESONIDE\FORMOTEROL FUMARATE DIHYDRATE
     Indication: Bronchitis chronic
     Route: 055
     Dates: start: 201011
  4. PANTOPRAZOLE [Concomitant]
     Active Substance: PANTOPRAZOLE
     Indication: Prophylaxis
     Dosage: 20 MILLIGRAM
     Route: 048
     Dates: start: 2010
  5. Severe acute respiratory syndrome coronavirus 2 (SARS-CoV-2) vaccine [Concomitant]
     Indication: COVID-19 prophylaxis
     Dates: start: 202104, end: 202104
  6. Severe acute respiratory syndrome coronavirus 2 (SARS-CoV-2) vaccine [Concomitant]
     Indication: COVID-19 prophylaxis
     Dates: start: 202211, end: 202211
  7. PREDNISONE [Concomitant]
     Active Substance: PREDNISONE
     Indication: Rheumatoid arthritis
     Dosage: 10 MILLIGRAM
     Route: 048
     Dates: start: 20211019
  8. LEFLUNOMIDE [Concomitant]
     Active Substance: LEFLUNOMIDE
     Indication: Rheumatoid arthritis
     Dosage: 20 MILLIGRAM
     Route: 048
     Dates: start: 20221024
  9. LEFLUNOMIDE [Concomitant]
     Active Substance: LEFLUNOMIDE
     Indication: Rheumatoid arthritis
     Dates: start: 201011, end: 201908
  10. IRBESARTAN [Concomitant]
     Active Substance: IRBESARTAN
     Indication: Hypertension
     Dosage: 150 MILLIGRAM
     Route: 048
     Dates: start: 201011
  11. INFLUENZA VIRUS VACCINE [Concomitant]
     Active Substance: INFLUENZA VIRUS VACCINE
     Indication: Antiviral prophylaxis
     Dates: start: 202211, end: 202211

REACTIONS (1)
  - Pulmonary embolism [Recovering/Resolving]

NARRATIVE: CASE EVENT DATE: 20230404
